FAERS Safety Report 19902704 (Version 1)
Quarter: 2021Q3

REPORT INFORMATION
  Report Type: Report from Study
  Country: CA (occurrence: CA)
  Receive Date: 20210930
  Receipt Date: 20210930
  Transmission Date: 20211014
  Serious: Yes (Other)
  Sender: FDA-Public Use
  Company Number: CA-BIOGEN-2021BI01053196

PATIENT
  Age: 26 Year
  Sex: Female

DRUGS (1)
  1. TYSABRI [Suspect]
     Active Substance: NATALIZUMAB
     Indication: MULTIPLE SCLEROSIS
     Route: 065
     Dates: start: 20210212

REACTIONS (2)
  - Herpes virus infection [Not Recovered/Not Resolved]
  - Ophthalmic herpes zoster [Not Recovered/Not Resolved]

NARRATIVE: CASE EVENT DATE: 20210917
